APPROVED DRUG PRODUCT: PANTOPRAZOLE SODIUM
Active Ingredient: PANTOPRAZOLE SODIUM
Strength: EQ 40MG BASE
Dosage Form/Route: TABLET, DELAYED RELEASE;ORAL
Application: A211368 | Product #001
Applicant: INGENUS PHARMACEUTICALS LLC
Approved: Mar 1, 2019 | RLD: No | RS: No | Type: DISCN